FAERS Safety Report 8071451-1 (Version None)
Quarter: 2012Q1

REPORT INFORMATION
  Report Type: 
  Country: None (occurrence: None)
  Receive Date: 20120125
  Receipt Date: 20120120
  Transmission Date: 20120608
  Serious: Yes (Other)
  Sender: FDA-Public Use
  Company Number: US-ASTRAZENECA-2012SE04151

PATIENT
  Age: 65 Year
  Sex: Female
  Weight: 77.1 kg

DRUGS (5)
  1. MULTI-VITAMINS [Concomitant]
  2. ASPIRIN [Concomitant]
  3. FISH OIL [Concomitant]
  4. FASLODEX [Suspect]
     Route: 030
     Dates: start: 20110801
  5. HIGH BLOOD PRESSURE PILLS [Concomitant]
     Indication: HYPERTENSION

REACTIONS (7)
  - MYALGIA [None]
  - INJECTION SITE PAIN [None]
  - TUMOUR MARKER INCREASED [None]
  - INFLAMMATION [None]
  - SCIATICA [None]
  - MUSCULAR WEAKNESS [None]
  - ARTHRALGIA [None]
